FAERS Safety Report 10702593 (Version 5)
Quarter: 2022Q4

REPORT INFORMATION
  Report Type: Spontaneous
  Country: CZ (occurrence: CZ)
  Receive Date: 20150109
  Receipt Date: 20221010
  Transmission Date: 20230112
  Serious: Yes (Life-Threatening)
  Sender: FDA-Public Use
  Company Number: CZ-009507513-1501CZE002662

PATIENT
  Age: 11 Year
  Sex: Female

DRUGS (14)
  1. TEMOZOLOMIDE [Suspect]
     Active Substance: TEMOZOLOMIDE
     Indication: Spinal cord neoplasm
     Dosage: 30 MG/M2, QD
     Route: 048
     Dates: start: 200803
  2. TEMOZOLOMIDE [Suspect]
     Active Substance: TEMOZOLOMIDE
     Indication: Oligoastrocytoma
     Dosage: 15 MG/M2, QD, (REDUCED TO 50%)
     Route: 048
  3. ETOPOSIDE [Suspect]
     Active Substance: ETOPOSIDE
     Indication: Spinal cord neoplasm
     Dosage: 25 MG/M2, QD
     Dates: start: 200803
  4. ETOPOSIDE [Suspect]
     Active Substance: ETOPOSIDE
     Indication: Oligoastrocytoma
     Dosage: 12.5 MG/M2, QD, (REDUCED TO 50%)
  5. CELECOXIB [Suspect]
     Active Substance: CELECOXIB
     Indication: Spinal cord neoplasm
     Dosage: UNK
     Dates: start: 200803
  6. CELECOXIB [Suspect]
     Active Substance: CELECOXIB
     Indication: Oligoastrocytoma
  7. TRETINOIN [Suspect]
     Active Substance: TRETINOIN
     Indication: Spinal cord neoplasm
     Dosage: UNK
     Dates: start: 200803
  8. TRETINOIN [Suspect]
     Active Substance: TRETINOIN
     Indication: Oligoastrocytoma
  9. VITAMIN D NOS [Suspect]
     Active Substance: VITAMIN D NOS
     Indication: Spinal cord neoplasm
     Dosage: UNK
  10. VITAMIN D NOS [Suspect]
     Active Substance: VITAMIN D NOS
     Indication: Oligoastrocytoma
  11. FENOFIBRATE [Suspect]
     Active Substance: FENOFIBRATE
     Indication: Spinal cord neoplasm
     Dosage: UNK
  12. FENOFIBRATE [Suspect]
     Active Substance: FENOFIBRATE
     Indication: Oligoastrocytoma
  13. BEVACIZUMAB [Suspect]
     Active Substance: BEVACIZUMAB
     Indication: Spinal cord neoplasm
     Dosage: UNK
  14. BEVACIZUMAB [Suspect]
     Active Substance: BEVACIZUMAB
     Indication: Oligoastrocytoma

REACTIONS (2)
  - Myelosuppression [Unknown]
  - Product administration error [Unknown]

NARRATIVE: CASE EVENT DATE: 20080301
